FAERS Safety Report 8532754 (Version 3)
Quarter: 2013Q1

REPORT INFORMATION
  Report Type: Report from Study
  Country: BR (occurrence: BR)
  Receive Date: 20120426
  Receipt Date: 20130328
  Transmission Date: 20140127
  Serious: Yes (Hospitalization, Other)
  Sender: FDA-Public Use
  Company Number: BR-ROCHE-1050251

PATIENT
  Sex: Female
  Weight: 57 kg

DRUGS (6)
  1. MABTHERA [Suspect]
     Indication: PRODUCT USED FOR UNKNOWN INDICATION
     Route: 042
     Dates: start: 20110727, end: 201204
  2. MABTHERA [Suspect]
     Route: 042
     Dates: start: 20110810
  3. MABTHERA [Suspect]
     Route: 042
     Dates: start: 20120202
  4. MABTHERA [Suspect]
     Route: 042
     Dates: end: 201210
  5. IMURAN [Concomitant]
     Route: 065
  6. PANTOPRAZOLE [Concomitant]
     Route: 065

REACTIONS (13)
  - Haematemesis [Recovered/Resolved]
  - Crohn^s disease [Unknown]
  - Haematochezia [Recovered/Resolved]
  - Haemorrhage [Not Recovered/Not Resolved]
  - Gastrointestinal inflammation [Recovering/Resolving]
  - Flatulence [Recovering/Resolving]
  - Eating disorder [Recovering/Resolving]
  - Constipation [Recovering/Resolving]
  - Abdominal discomfort [Recovering/Resolving]
  - Malaise [Not Recovered/Not Resolved]
  - Decreased appetite [Not Recovered/Not Resolved]
  - Abdominal distension [Not Recovered/Not Resolved]
  - Arthralgia [Recovered/Resolved]
